FAERS Safety Report 7722079-1 (Version None)
Quarter: 2011Q3

REPORT INFORMATION
  Report Type: 
  Country: None (occurrence: None)
  Receive Date: 20110831
  Receipt Date: 20110822
  Transmission Date: 20111222
  Serious: Yes (Other)
  Sender: FDA-Public Use
  Company Number: PHEH2011US02145

PATIENT
  Sex: Female

DRUGS (2)
  1. RECLAST [Suspect]
     Route: 042
  2. LORTAB [Concomitant]
     Indication: PAIN
     Dosage: 10 MG

REACTIONS (1)
  - BLADDER DISCOMFORT [None]
